FAERS Safety Report 13421906 (Version 1)
Quarter: 2017Q2

REPORT INFORMATION
  Report Type: Spontaneous
  Country: US (occurrence: US)
  Receive Date: 20170410
  Receipt Date: 20170410
  Transmission Date: 20170830
  Serious: No
  Sender: FDA-Public Use
  Company Number: US-PFIZER INC-2017149488

PATIENT
  Age: 60 Year
  Sex: Female
  Weight: 64.85 kg

DRUGS (2)
  1. PLAQUENIL [Suspect]
     Active Substance: HYDROXYCHLOROQUINE SULFATE
     Indication: POLYARTHRITIS
     Dosage: UNK
  2. SULFASALAZINE. [Suspect]
     Active Substance: SULFASALAZINE
     Indication: POLYARTHRITIS
     Dosage: 1000 MG, 3X/DAY
     Route: 048

REACTIONS (3)
  - Asthenia [Unknown]
  - Poor quality sleep [Unknown]
  - Drug effect incomplete [Unknown]
